FAERS Safety Report 25157012 (Version 2)
Quarter: 2025Q2

REPORT INFORMATION
  Report Type: Spontaneous
  Country: US (occurrence: US)
  Receive Date: 20250403
  Receipt Date: 20250404
  Transmission Date: 20250716
  Serious: Yes (Disabling, Other)
  Sender: SANOFI AVENTIS
  Company Number: US-SA-2025SA094852

PATIENT
  Age: 55 Year
  Sex: Female
  Weight: 100 kg

DRUGS (13)
  1. KEVZARA [Suspect]
     Active Substance: SARILUMAB
     Indication: Rheumatoid arthritis
     Dosage: 200 MG, QOW
     Route: 058
     Dates: start: 2017
  2. PLAVIX [Concomitant]
     Active Substance: CLOPIDOGREL BISULFATE
  3. NP THYROID [Concomitant]
     Active Substance: LEVOTHYROXINE\LIOTHYRONINE
  4. EMGALITY [Concomitant]
     Active Substance: GALCANEZUMAB-GNLM
  5. EVOXAC [Concomitant]
     Active Substance: CEVIMELINE HYDROCHLORIDE
  6. ASPIRIN [Concomitant]
     Active Substance: ASPIRIN
  7. METHOTREXATE [Concomitant]
     Active Substance: METHOTREXATE
  8. TROKENDI XR [Concomitant]
     Active Substance: TOPIRAMATE
  9. ACETAZOLAMIDE [Concomitant]
     Active Substance: ACETAZOLAMIDE
  10. METFORMIN HYDROCHLORIDE [Concomitant]
     Active Substance: METFORMIN HYDROCHLORIDE
  11. PREDNISONE [Concomitant]
     Active Substance: PREDNISONE
  12. PREDNISONE [Concomitant]
     Active Substance: PREDNISONE
  13. IBUPROFEN [Concomitant]
     Active Substance: IBUPROFEN

REACTIONS (8)
  - Rheumatoid arthritis [Not Recovered/Not Resolved]
  - Gait disturbance [Not Recovered/Not Resolved]
  - Musculoskeletal disorder [Not Recovered/Not Resolved]
  - Product dose omission issue [Not Recovered/Not Resolved]
  - Raynaud^s phenomenon [Not Recovered/Not Resolved]
  - Peripheral swelling [Unknown]
  - Finger deformity [Unknown]
  - Foot amputation [Unknown]

NARRATIVE: CASE EVENT DATE: 20250217
